FAERS Safety Report 13922080 (Version 1)
Quarter: 2017Q3

REPORT INFORMATION
  Report Type: Spontaneous
  Country: US (occurrence: US)
  Receive Date: 20170830
  Receipt Date: 20170830
  Transmission Date: 20171127
  Serious: No
  Sender: FDA-Public Use
  Company Number: US-TARO-2016TAR00837

PATIENT
  Age: 87 Year
  Sex: Male

DRUGS (2)
  1. WARFARIN SODIUM TABLETS USP 2.5MG [Suspect]
     Active Substance: WARFARIN SODIUM
     Dosage: UNK
  2. ALENDRONATE SODIUM (ACTAVIS) [Suspect]
     Active Substance: ALENDRONATE SODIUM

REACTIONS (5)
  - Musculoskeletal discomfort [Unknown]
  - Arthralgia [Unknown]
  - Asthenia [Unknown]
  - Musculoskeletal stiffness [Unknown]
  - Headache [Unknown]
